FAERS Safety Report 10227833 (Version 1)
Quarter: 2014Q2

REPORT INFORMATION
  Report Type: Spontaneous
  Country: FR (occurrence: None)
  Receive Date: 20140606
  Receipt Date: 20140606
  Transmission Date: 20141212
  Serious: Yes (Hospitalization)
  Sender: FDA-Public Use
  Company Number: AG-2014-003003

PATIENT
  Age: 94 Year
  Sex: Female
  Weight: 51 kg

DRUGS (4)
  1. ARIXTRA [Suspect]
     Indication: PULMONARY EMBOLISM
     Route: 058
     Dates: start: 20140210, end: 20140225
  2. COUMADINE [Suspect]
     Indication: PULMONARY EMBOLISM
     Route: 048
     Dates: start: 20140207, end: 20140216
  3. INEXIUM [Concomitant]
  4. ALPRAZOLAM [Concomitant]

REACTIONS (4)
  - Haematoma [None]
  - Anaemia [None]
  - Drug administration error [None]
  - Incorrect dosage administered [None]
